FAERS Safety Report 16808775 (Version 1)
Quarter: 2019Q3

REPORT INFORMATION
  Report Type: Spontaneous
  Country: IT (occurrence: IT)
  Receive Date: 20190916
  Receipt Date: 20190916
  Transmission Date: 20191005
  Serious: Yes (Life-Threatening, Hospitalization, Other)
  Sender: FDA-Public Use
  Company Number: IT-ACCORD-154881

PATIENT
  Age: 72 Year
  Sex: Male

DRUGS (2)
  1. MYCOPHENOLATE MOFETIL/MYCOPHENOLATE SODIUM/MYCOPHENOLIC ACID [Suspect]
     Active Substance: MYCOPHENOLIC ACID
     Indication: IMMUNOSUPPRESSANT DRUG THERAPY
  2. TACROLIMUS. [Suspect]
     Active Substance: TACROLIMUS
     Indication: IMMUNOSUPPRESSANT DRUG THERAPY

REACTIONS (6)
  - Urosepsis [Recovering/Resolving]
  - Staphylococcal infection [Recovering/Resolving]
  - Septic shock [Recovering/Resolving]
  - Respiratory distress [Unknown]
  - Pneumonia [Recovering/Resolving]
  - Acute kidney injury [Unknown]
